FAERS Safety Report 9147107 (Version 1)
Quarter: 2013Q1

REPORT INFORMATION
  Report Type: Spontaneous
  Country: TR (occurrence: TR)
  Receive Date: 20130307
  Receipt Date: 20130307
  Transmission Date: 20140127
  Serious: Yes (Other)
  Sender: FDA-Public Use
  Company Number: TR-ROCHE-1198351

PATIENT
  Sex: Male
  Weight: 86 kg

DRUGS (2)
  1. BEVACIZUMAB [Suspect]
     Indication: PRODUCT USED FOR UNKNOWN INDICATION
     Route: 042
  2. ELOXATINE [Suspect]
     Indication: PRODUCT USED FOR UNKNOWN INDICATION
     Route: 042

REACTIONS (4)
  - Flushing [Unknown]
  - Pruritus [Unknown]
  - Face oedema [Unknown]
  - Dyspnoea [Unknown]
